FAERS Safety Report 19454566 (Version 1)
Quarter: 2021Q2

REPORT INFORMATION
  Report Type: Report from Study
  Country: CA (occurrence: CA)
  Receive Date: 20210623
  Receipt Date: 20210623
  Transmission Date: 20210717
  Serious: Yes (Other)
  Sender: FDA-Public Use
  Company Number: CA-OTSUKA-2021_021156

PATIENT
  Age: 81 Year
  Sex: Female

DRUGS (1)
  1. ASTX727 [Suspect]
     Active Substance: CEDAZURIDINE\DECITABINE
     Indication: MYELODYSPLASTIC SYNDROME
     Dosage: UNK
     Route: 065
     Dates: start: 20210603

REACTIONS (5)
  - Transfusion [Unknown]
  - Oxygen saturation decreased [Unknown]
  - Malaise [Unknown]
  - Feeling abnormal [Unknown]
  - Nausea [Unknown]

NARRATIVE: CASE EVENT DATE: 20210610
